FAERS Safety Report 5136619-2 (Version None)
Quarter: 2006Q4

REPORT INFORMATION
  Report Type: 
  Country: None (occurrence: None)
  Receive Date: 20061027
  Receipt Date: 20061017
  Transmission Date: 20070319
  Serious: Yes (Other)
  Sender: FDA-Public Use
  Company Number: CA-ABBOTT-06P-028-0347034-00

PATIENT
  Age: 36 Year
  Sex: Male

DRUGS (11)
  1. RITONAVIR [Suspect]
     Indication: SYSTEMIC ANTIVIRAL TREATMENT
     Route: 065
  2. CARBAMAZEPINE [Interacting]
     Indication: DRUG USE FOR UNKNOWN INDICATION
     Route: 065
  3. CARBAMAZEPINE [Interacting]
     Route: 065
  4. SAQUINAVIR [Suspect]
     Indication: SYSTEMIC ANTIVIRAL TREATMENT
  5. NEVIRAPINE [Suspect]
     Indication: SYSTEMIC ANTIVIRAL TREATMENT
  6. STAVUDINE [Concomitant]
     Indication: HIV INFECTION
     Route: 065
  7. LAMIVUDINE [Concomitant]
     Indication: HIV INFECTION
     Route: 065
  8. INDINIVIR SULFATE [Concomitant]
     Indication: HIV INFECTION
     Route: 065
  9. PHENOBARBITAL TAB [Concomitant]
     Indication: CONVULSION
     Dosage: 100-50-100 MG
     Route: 065
  10. PHENYTOIN [Concomitant]
     Indication: CONVULSION
     Dosage: 200-100-200 MG
  11. NELFINAVIR [Concomitant]
     Indication: SYSTEMIC ANTIVIRAL TREATMENT
     Route: 065

REACTIONS (7)
  - COORDINATION ABNORMAL [None]
  - DIPLOPIA [None]
  - DISORIENTATION [None]
  - DRUG INTERACTION [None]
  - DRUG TOXICITY [None]
  - SOMNOLENCE [None]
  - VERTIGO [None]
